FAERS Safety Report 12714627 (Version 1)
Quarter: 2016Q3

REPORT INFORMATION
  Report Type: Spontaneous
  Country: HR (occurrence: HR)
  Receive Date: 20160905
  Receipt Date: 20160905
  Transmission Date: 20161109
  Serious: Yes (Hospitalization)
  Sender: FDA-Public Use
  Company Number: HR-ROCHE-1825163

PATIENT
  Age: 64 Year
  Sex: Female

DRUGS (2)
  1. ROACTEMRA [Suspect]
     Active Substance: TOCILIZUMAB
     Indication: RHEUMATOID ARTHRITIS
     Route: 058
     Dates: start: 20151111, end: 20151125
  2. RESOCHIN [Concomitant]
     Active Substance: NIFEDIPINE

REACTIONS (4)
  - Pleural effusion [Recovered/Resolved]
  - Pericarditis [Recovered/Resolved]
  - Leukopenia [Unknown]
  - Pneumonia [Recovered/Resolved]

NARRATIVE: CASE EVENT DATE: 20151207
